FAERS Safety Report 10271870 (Version 1)
Quarter: 2014Q3

REPORT INFORMATION
  Report Type: Spontaneous
  Country: FR (occurrence: FR)
  Receive Date: 20140702
  Receipt Date: 20140702
  Transmission Date: 20150326
  Serious: Yes (Hospitalization)
  Sender: FDA-Public Use
  Company Number: PHHY2014FR078672

PATIENT
  Age: 59 Year
  Sex: Male

DRUGS (4)
  1. PREDNISONE. [Suspect]
     Active Substance: PREDNISONE
     Dosage: 20 MG, DAILY
  2. PREDNISONE. [Suspect]
     Active Substance: PREDNISONE
     Indication: MUSCULAR WEAKNESS
     Dosage: 60 MG, PER DAY AT FIRST FOR 4 WEEKS
  3. AZATHIOPRINE. [Suspect]
     Active Substance: AZATHIOPRINE
     Indication: OPHTHALMOPLEGIA
     Dosage: 150 MG, PER DAY
     Route: 048
  4. AZATHIOPRINE. [Suspect]
     Active Substance: AZATHIOPRINE
     Indication: EYELID PTOSIS

REACTIONS (6)
  - Necrotising herpetic retinopathy [Recovered/Resolved]
  - Eye oedema [Recovered/Resolved]
  - Necrotising retinitis [Recovered/Resolved]
  - Blindness unilateral [Recovered/Resolved]
  - Vitritis [Recovered/Resolved]
  - Varicella virus test positive [Recovered/Resolved]
